FAERS Safety Report 9113658 (Version 1)
Quarter: 2013Q1

REPORT INFORMATION
  Report Type: Report from Study
  Country: US (occurrence: US)
  Receive Date: 20130208
  Receipt Date: 20130208
  Transmission Date: 20140127
  Serious: Yes (Other)
  Sender: FDA-Public Use
  Company Number: US-US-EMD SERONO, INC.-7191709

PATIENT
  Age: 47 Year
  Sex: Female

DRUGS (3)
  1. REBIF [Suspect]
     Indication: PRODUCT USED FOR UNKNOWN INDICATION
     Route: 058
     Dates: start: 20121231
  2. REBIF [Suspect]
     Route: 058
  3. REBIF [Suspect]
     Route: 058

REACTIONS (4)
  - Bladder transitional cell carcinoma [Recovering/Resolving]
  - Insomnia [Unknown]
  - Feeling cold [Unknown]
  - Pain [Unknown]
